FAERS Safety Report 23513034 (Version 1)
Quarter: 2024Q1

REPORT INFORMATION
  Report Type: Spontaneous
  Country: US (occurrence: None)
  Receive Date: 20240209
  Receipt Date: 20240209
  Transmission Date: 20240410
  Serious: Yes (Other)
  Sender: FDA-Public Use
  Company Number: None

PATIENT
  Age: 55 Year
  Sex: Male
  Weight: 111.15 kg

DRUGS (1)
  1. PAXLOVID [Suspect]
     Active Substance: NIRMATRELVIR\RITONAVIR
     Indication: COVID-19
     Dosage: TWICE A DAY ORAL
     Route: 048
     Dates: start: 20240205

REACTIONS (5)
  - Dysgeusia [None]
  - Nausea [None]
  - Vomiting [None]
  - Dizziness [None]
  - Ear infection [None]

NARRATIVE: CASE EVENT DATE: 20240209
